FAERS Safety Report 10161656 (Version 3)
Quarter: 2014Q2

REPORT INFORMATION
  Report Type: Spontaneous
  Country: US (occurrence: US)
  Receive Date: 20140509
  Receipt Date: 20140530
  Transmission Date: 20141212
  Serious: Yes (Death, Hospitalization, Other)
  Sender: FDA-Public Use
  Company Number: US-MERCK-1405USA001852

PATIENT
  Age: 42 Year
  Sex: Male

DRUGS (4)
  1. ZOLINZA [Suspect]
     Dosage: 2 (100MG) CAPSULES TWICE DAILY
     Route: 048
  2. ZOLINZA [Suspect]
     Dosage: 2 (100MG) CAPSULES TWICE DAILY
     Route: 048
  3. TEMODAR [Suspect]
     Route: 048
  4. DECADRON [Suspect]

REACTIONS (3)
  - Disease progression [Fatal]
  - Cushingoid [Unknown]
  - Cerebrovascular accident [Unknown]
